FAERS Safety Report 9903409 (Version 2)
Quarter: 2015Q3

REPORT INFORMATION
  Report Type: Spontaneous
  Country: US (occurrence: US)
  Receive Date: 20140217
  Receipt Date: 20150811
  Transmission Date: 20151125
  Serious: No
  Sender: FDA-Public Use
  Company Number: US-GILEAD-2012-0049620

PATIENT
  Age: 53 Year
  Sex: Female

DRUGS (3)
  1. EPOPROSTENOL SODIUM. [Concomitant]
     Active Substance: EPOPROSTENOL SODIUM
  2. FLOLAN [Concomitant]
     Active Substance: EPOPROSTENOL SODIUM
  3. LETAIRIS [Suspect]
     Active Substance: AMBRISENTAN
     Indication: PRODUCT USED FOR UNKNOWN INDICATION
     Dosage: 5 MG, UNK
     Route: 048
     Dates: start: 20110812

REACTIONS (2)
  - Hyperhidrosis [Unknown]
  - Flushing [Unknown]
